FAERS Safety Report 13412291 (Version 3)
Quarter: 2020Q1

REPORT INFORMATION
  Report Type: Spontaneous
  Country: US (occurrence: US)
  Receive Date: 20170406
  Receipt Date: 20200203
  Transmission Date: 20200409
  Serious: No
  Sender: FDA-Public Use
  Company Number: US-JNJFOC-20170315249

PATIENT
  Age: 24 Year
  Sex: Male

DRUGS (14)
  1. RISPERDAL [Suspect]
     Active Substance: RISPERIDONE
     Dosage: IN THE VARYING DOSE OF 2 MG AND 3 MG.
     Route: 048
     Dates: start: 20110915, end: 20110921
  2. RISPERDAL M-TAB [Suspect]
     Active Substance: RISPERIDONE
     Route: 048
     Dates: start: 20101202
  3. RISPERIDONE. [Suspect]
     Active Substance: RISPERIDONE
     Indication: SCHIZOPHRENIA
     Dosage: IN THE VARYING DOSES OF 1 MG AND 3 MG.
     Route: 048
     Dates: start: 20110324, end: 20110418
  4. RISPERDAL [Suspect]
     Active Substance: RISPERIDONE
     Route: 048
     Dates: start: 20120508, end: 20121002
  5. RISPERDAL [Suspect]
     Active Substance: RISPERIDONE
     Route: 048
     Dates: start: 20120508, end: 20120628
  6. RISPERIDONE. [Suspect]
     Active Substance: RISPERIDONE
     Dosage: IN THE VARYING DOSES OF 1 MG , 2 MG AND 3 MG
     Route: 048
     Dates: start: 20110516, end: 20110909
  7. RISPERDAL [Suspect]
     Active Substance: RISPERIDONE
     Dosage: IN THE VARYING DOSE OF 1 MG AND 3 MG
     Route: 048
     Dates: start: 20101201, end: 20101210
  8. RISPERDAL [Suspect]
     Active Substance: RISPERIDONE
     Route: 048
     Dates: start: 20120829
  9. RISPERDAL CONSTA [Suspect]
     Active Substance: RISPERIDONE
     Indication: SCHIZOPHRENIA
     Dosage: IN THE VARYING DOSES OF 25 MG, 37.5 MG AND 50 MG
     Route: 030
     Dates: start: 20110319, end: 20121002
  10. RISPERDAL [Suspect]
     Active Substance: RISPERIDONE
     Route: 048
     Dates: end: 20111004
  11. RISPERDAL M-TAB [Suspect]
     Active Substance: RISPERIDONE
     Indication: SCHIZOPHRENIA
     Route: 048
     Dates: start: 20101120
  12. RISPERDAL [Suspect]
     Active Substance: RISPERIDONE
     Indication: SCHIZOPHRENIA
     Route: 048
     Dates: start: 20101120
  13. RISPERDAL [Suspect]
     Active Substance: RISPERIDONE
     Route: 048
     Dates: start: 20110319, end: 20110331
  14. RISPERIDONE. [Suspect]
     Active Substance: RISPERIDONE
     Indication: SCHIZOPHRENIA
     Dosage: IN THE VARYING DOSES OF 1 MG , 3 MG AND 4 MG
     Route: 048
     Dates: start: 20101210, end: 20110324

REACTIONS (2)
  - Gynaecomastia [Unknown]
  - Emotional distress [Unknown]

NARRATIVE: CASE EVENT DATE: 20121211
